FAERS Safety Report 17198430 (Version 1)
Quarter: 2019Q4

REPORT INFORMATION
  Report Type: Report from Study
  Country: CN (occurrence: CN)
  Receive Date: 20191225
  Receipt Date: 20191225
  Transmission Date: 20200122
  Serious: Yes (Other)
  Sender: FDA-Public Use
  Company Number: CN-ROCHE-2500655

PATIENT

DRUGS (1)
  1. CAPECITABINE. [Suspect]
     Active Substance: CAPECITABINE
     Indication: RECTAL CANCER RECURRENT
     Dosage: ORALLY IN TWO DIVIDED DOSES
     Route: 048

REACTIONS (4)
  - Gastrointestinal disorder [Unknown]
  - White blood cell count decreased [Unknown]
  - Radiation proctitis [Unknown]
  - Cystitis radiation [Unknown]
